FAERS Safety Report 9330178 (Version 1)
Quarter: 2013Q2

REPORT INFORMATION
  Report Type: Spontaneous
  Country: US (occurrence: US)
  Receive Date: 20130604
  Receipt Date: 20130604
  Transmission Date: 20140414
  Serious: No
  Sender: FDA-Public Use
  Company Number: US-ASTRAZENECA-2013SE36198

PATIENT
  Age: 56 Year
  Sex: Male
  Weight: 86.2 kg

DRUGS (5)
  1. CRESTOR [Suspect]
     Indication: BLOOD CHOLESTEROL ABNORMAL
     Route: 048
     Dates: start: 2011, end: 201303
  2. CRESTOR [Suspect]
     Indication: BLOOD CHOLESTEROL ABNORMAL
     Route: 048
  3. VITAMIN B [Concomitant]
  4. COQ10 [Concomitant]
  5. OMEGA 3 [Concomitant]

REACTIONS (5)
  - Limb discomfort [Unknown]
  - Muscle spasms [Unknown]
  - Middle insomnia [Recovered/Resolved]
  - Asthenia [Unknown]
  - Off label use [Unknown]
